FAERS Safety Report 16018764 (Version 3)
Quarter: 2019Q2

REPORT INFORMATION
  Report Type: Spontaneous
  Country: US (occurrence: US)
  Receive Date: 20190228
  Receipt Date: 20190412
  Transmission Date: 20190711
  Serious: Yes (Other)
  Sender: FDA-Public Use
  Company Number: US-ASTRAZENECA-2018SF25637

PATIENT
  Sex: Male

DRUGS (18)
  1. SYMBICORT [Concomitant]
     Active Substance: BUDESONIDE\FORMOTEROL FUMARATE DIHYDRATE
  2. PRILOSEC [Suspect]
     Active Substance: OMEPRAZOLE MAGNESIUM
     Indication: GASTROOESOPHAGEAL REFLUX DISEASE
     Route: 048
  3. SODIUM BICARBONATE. [Concomitant]
     Active Substance: SODIUM BICARBONATE
  4. CARVEDILOL. [Concomitant]
     Active Substance: CARVEDILOL
     Indication: BLOOD PRESSURE ABNORMAL
     Dates: start: 2015
  5. ZYRTEC [Concomitant]
     Active Substance: CETIRIZINE HYDROCHLORIDE
  6. ASPIRIN. [Concomitant]
     Active Substance: ASPIRIN
     Indication: HEADACHE
  7. ESOMEPRAZOLE. [Suspect]
     Active Substance: ESOMEPRAZOLE MAGNESIUM
     Route: 048
  8. HYDRALAZINE [Concomitant]
     Active Substance: HYDRALAZINE HYDROCHLORIDE
  9. LEVETIRACETAM. [Concomitant]
     Active Substance: LEVETIRACETAM
  10. TUMS [Concomitant]
     Active Substance: CALCIUM CARBONATE
     Dosage: AS NEEDED
  11. ASPIRIN. [Concomitant]
     Active Substance: ASPIRIN
     Indication: PYREXIA
  12. PRILOSEC [Suspect]
     Active Substance: OMEPRAZOLE MAGNESIUM
     Indication: GASTROOESOPHAGEAL REFLUX DISEASE
     Dosage: OMEPRAZOLE
     Route: 048
     Dates: start: 1989, end: 2017
  13. GABAPENTIN. [Concomitant]
     Active Substance: GABAPENTIN
  14. NOVALOGUE [Concomitant]
  15. LANTUS [Concomitant]
     Active Substance: INSULIN GLARGINE
  16. QUETIAPINE. [Concomitant]
     Active Substance: QUETIAPINE
  17. ISOSORBIDE. [Concomitant]
     Active Substance: ISOSORBIDE
  18. RANITIDINE. [Concomitant]
     Active Substance: RANITIDINE
     Dates: start: 2014

REACTIONS (2)
  - Chronic kidney disease [Unknown]
  - Renal injury [Unknown]
